FAERS Safety Report 8936940 (Version 1)
Quarter: 2012Q4

REPORT INFORMATION
  Report Type: 
  Country: CA (occurrence: CA)
  Receive Date: 20121130
  Receipt Date: 20121130
  Transmission Date: 20130627
  Serious: Yes (Disabling)
  Sender: FDA-Public Use
  Company Number: CA-ASTRAZENECA-2012SE89076

PATIENT
  Age: 68 Year
  Sex: Male

DRUGS (6)
  1. CRESTOR [Suspect]
     Route: 048
  2. ASA [Concomitant]
     Route: 065
  3. COENZYME Q10 [Concomitant]
     Route: 065
  4. DIAMICRON [Concomitant]
     Route: 065
  5. FISH OIL [Concomitant]
     Route: 065
  6. METFORMIN [Concomitant]
     Route: 065

REACTIONS (4)
  - Hypokinesia [Recovered/Resolved]
  - Muscular weakness [Recovered/Resolved]
  - Pain in extremity [Recovered/Resolved]
  - Paraesthesia [Recovered/Resolved]
